FAERS Safety Report 4591442-2 (Version None)
Quarter: 2005Q1

REPORT INFORMATION
  Report Type: 
  Country: None (occurrence: None)
  Receive Date: 20050223
  Receipt Date: 20050223
  Transmission Date: 20050727
  Serious: Yes (Hospitalization)
  Sender: FDA-Public Use
  Company Number: None

PATIENT
  Age: 5 Year
  Sex: Male

DRUGS (1)
  1. FOCALIN XR [Suspect]
     Indication: ATTENTION DEFICIT/HYPERACTIVITY DISORDER
     Dosage: 2.5 MG   DAILY  ORAL
     Route: 048
     Dates: start: 20050201, end: 20050222

REACTIONS (5)
  - CONVULSION [None]
  - IDIOPATHIC THROMBOCYTOPENIC PURPURA [None]
  - LETHARGY [None]
  - PALLOR [None]
  - PYREXIA [None]
